FAERS Safety Report 21695819 (Version 1)
Quarter: 2022Q4

REPORT INFORMATION
  Report Type: Report from Study
  Country: IT (occurrence: IT)
  Receive Date: 20221207
  Receipt Date: 20221207
  Transmission Date: 20230113
  Serious: Yes (Other)
  Sender: FDA-Public Use
  Company Number: IT-Merck Healthcare KGaA-9369397

PATIENT
  Age: 59 Year
  Sex: Male
  Weight: 73 kg

DRUGS (10)
  1. AVELUMAB [Suspect]
     Active Substance: AVELUMAB
     Indication: Colorectal cancer metastatic
     Dosage: 800 MG
     Dates: start: 20210728
  2. AVELUMAB [Suspect]
     Active Substance: AVELUMAB
     Dosage: 800 MG
     Dates: start: 20211130
  3. IRINOTECAN HYDROCHLORIDE [Suspect]
     Active Substance: IRINOTECAN HYDROCHLORIDE
     Indication: Colorectal cancer metastatic
     Dosage: UNK
     Dates: start: 20210728
  4. IRINOTECAN HYDROCHLORIDE [Suspect]
     Active Substance: IRINOTECAN HYDROCHLORIDE
     Dosage: UNK
     Dates: start: 20211130
  5. CETUXIMAB [Suspect]
     Active Substance: CETUXIMAB
     Indication: Colorectal cancer metastatic
     Dosage: UNK
     Dates: start: 20210728
  6. CETUXIMAB [Suspect]
     Active Substance: CETUXIMAB
     Dosage: UNK
     Dates: start: 20211130
  7. FLUOROURACIL [Suspect]
     Active Substance: FLUOROURACIL
     Indication: Colorectal cancer metastatic
     Dosage: UNK
     Dates: start: 20210728
  8. FLUOROURACIL [Suspect]
     Active Substance: FLUOROURACIL
     Dosage: UNK
     Dates: start: 20211130
  9. OXALIPLATIN [Suspect]
     Active Substance: OXALIPLATIN
     Indication: Colorectal cancer metastatic
     Dosage: UNK
     Dates: start: 20210728
  10. OXALIPLATIN [Suspect]
     Active Substance: OXALIPLATIN
     Dosage: UNK
     Dates: start: 20211130

REACTIONS (1)
  - Immune-mediated dermatitis [Recovered/Resolved]

NARRATIVE: CASE EVENT DATE: 20211214
